FAERS Safety Report 5676341-7 (Version None)
Quarter: 2008Q1

REPORT INFORMATION
  Report Type: 
  Country: None (occurrence: None)
  Receive Date: 20080321
  Receipt Date: 20080314
  Transmission Date: 20080703
  Serious: Yes (Death, Hospitalization)
  Sender: FDA-Public Use
  Company Number: NL-PFIZER INC-2008022138

PATIENT
  Sex: Female

DRUGS (1)
  1. IRINOTECAN HCL [Suspect]
     Indication: COLON CANCER METASTATIC
     Route: 042
     Dates: start: 20050301, end: 20050301

REACTIONS (2)
  - DEATH [None]
  - NEUTROPENIC SEPSIS [None]
